FAERS Safety Report 7579971-0 (Version None)
Quarter: 2011Q2

REPORT INFORMATION
  Report Type: 
  Country: None (occurrence: None)
  Receive Date: 20110629
  Receipt Date: 20110622
  Transmission Date: 20111010
  Serious: Yes (Other)
  Sender: FDA-Public Use
  Company Number: US-JNJFOC-20110407670

PATIENT
  Sex: Female
  Weight: 52.16 kg

DRUGS (2)
  1. LEVSIN [Suspect]
     Indication: ABDOMINAL PAIN UPPER
     Route: 065
     Dates: start: 20100101, end: 20110414
  2. TOPAMAX [Suspect]
     Indication: MIGRAINE PROPHYLAXIS
     Route: 048
     Dates: start: 20100101, end: 20110301

REACTIONS (2)
  - GASTRIC ULCER [None]
  - ABDOMINAL PAIN UPPER [None]
